FAERS Safety Report 7392634-X (Version None)
Quarter: 2011Q1

REPORT INFORMATION
  Report Type: 
  Country: None (occurrence: None)
  Receive Date: 20110330
  Receipt Date: 20110330
  Transmission Date: 20110831
  Serious: No
  Sender: FDA-Public Use
  Company Number: None

PATIENT
  Age: 66 Year
  Sex: Male
  Weight: 138 kg

DRUGS (1)
  1. BORTEZOMIB [Suspect]
     Dosage: 285MG OTHER IV
     Route: 042
     Dates: start: 20101015, end: 20110118

REACTIONS (2)
  - ANGIOEDEMA [None]
  - RASH [None]
